FAERS Safety Report 21713433 (Version 3)
Quarter: 2023Q2

REPORT INFORMATION
  Report Type: Spontaneous
  Country: US (occurrence: US)
  Receive Date: 20221212
  Receipt Date: 20230407
  Transmission Date: 20230722
  Serious: No
  Sender: FDA-Public Use
  Company Number: US-PFIZER INC-PV202200120308

PATIENT
  Age: 75 Year
  Sex: Female

DRUGS (1)
  1. XELJANZ XR [Suspect]
     Active Substance: TOFACITINIB CITRATE
     Indication: Rheumatoid arthritis
     Dosage: UNK

REACTIONS (11)
  - Arthralgia [Unknown]
  - Joint stiffness [Unknown]
  - Muscle spasms [Unknown]
  - Pain in extremity [Unknown]
  - Neck pain [Unknown]
  - Hypertension [Unknown]
  - Rash macular [Unknown]
  - Pruritus [Unknown]
  - Rash [Unknown]
  - Skin disorder [Unknown]
  - Dry skin [Unknown]
